FAERS Safety Report 25933576 (Version 2)
Quarter: 2025Q4

REPORT INFORMATION
  Report Type: Spontaneous
  Country: CA (occurrence: CA)
  Receive Date: 20251017
  Receipt Date: 20251022
  Transmission Date: 20260117
  Serious: Yes (Other)
  Sender: TEVA
  Company Number: CA-TEVA-VS-3382809

PATIENT
  Age: 70 Year
  Sex: Male

DRUGS (2)
  1. CARBOPLATIN [Suspect]
     Active Substance: CARBOPLATIN
     Indication: Squamous cell carcinoma
     Dosage: DOSE FORM : SOLUTION INTRAVENOUS, CARBOPLATIN INJECTION?BP, THERAPY DURATION: -59 WITHOUT UNIT
     Route: 042
  2. PACLITAXEL [Suspect]
     Active Substance: PACLITAXEL
     Indication: Squamous cell carcinoma
     Dosage: DOSE FORM : LIQUID INTRAVENOUS, THERAPY DURATION: -59 WITHOUT UNIT
     Route: 042

REACTIONS (2)
  - Dermatitis [Recovered/Resolved]
  - Off label use [Recovered/Resolved]
